FAERS Safety Report 24603032 (Version 1)
Quarter: 2024Q4

REPORT INFORMATION
  Report Type: Spontaneous
  Country: US (occurrence: None)
  Receive Date: 20241108
  Receipt Date: 20241108
  Transmission Date: 20250115
  Serious: No
  Sender: Public
  Company Number: None

PATIENT
  Age: 86 Year
  Sex: Female

DRUGS (2)
  1. HUMIRA [Suspect]
     Active Substance: ADALIMUMAB
     Indication: Neuralgia
     Dosage: 40 MG  : Q 14 DAYS SUBCUTANEOUS?
     Route: 058
     Dates: start: 20240718
  2. HUMIRA [Suspect]
     Active Substance: ADALIMUMAB
     Indication: Neuritis

REACTIONS (4)
  - Dizziness [None]
  - Fatigue [None]
  - Mental disorder [None]
  - Flushing [None]

NARRATIVE: CASE EVENT DATE: 20241108
